FAERS Safety Report 17418915 (Version 1)
Quarter: 2020Q1

REPORT INFORMATION
  Report Type: Report from Study
  Country: JP (occurrence: JP)
  Receive Date: 20200214
  Receipt Date: 20200214
  Transmission Date: 20200409
  Serious: Yes (Other)
  Sender: FDA-Public Use
  Company Number: JP-TEVA-2020-JP-1186183

PATIENT
  Age: 75 Year
  Sex: Female

DRUGS (2)
  1. PEMBROLIZUMAB. [Suspect]
     Active Substance: PEMBROLIZUMAB
     Indication: LUNG NEOPLASM MALIGNANT
     Route: 065
  2. PREDNISOLONE. [Suspect]
     Active Substance: PREDNISOLONE
     Indication: DIARRHOEA
     Dosage: UNKNOWN DOSAGE, WHICH WAS SUBSEQUENTLY REDUCED.
     Route: 065

REACTIONS (2)
  - Diarrhoea [Recovered/Resolved]
  - Cytomegalovirus enteritis [Unknown]
